FAERS Safety Report 5706732-7 (Version None)
Quarter: 2008Q2

REPORT INFORMATION
  Report Type: 
  Country: None (occurrence: None)
  Receive Date: 20080416
  Receipt Date: 20080410
  Transmission Date: 20081010
  Serious: Yes (Hospitalization)
  Sender: FDA-Public Use
  Company Number: PHEH2007US10532

PATIENT
  Age: 46 Year
  Sex: Female
  Weight: 118 kg

DRUGS (4)
  1. TEKTURNA [Suspect]
     Route: 048
  2. CIPRO [Suspect]
  3. AVONEX [Concomitant]
  4. GLUCOPHAGE [Concomitant]

REACTIONS (1)
  - RENAL FAILURE ACUTE [None]
